FAERS Safety Report 4735579-3 (Version None)
Quarter: 2005Q3

REPORT INFORMATION
  Report Type: 
  Country: None (occurrence: None)
  Receive Date: 20050805
  Receipt Date: 20050502
  Transmission Date: 20060218
  Serious: Yes (Hospitalization, Other)
  Sender: FDA-Public Use
  Company Number: US-MERCK-0505USA00385

PATIENT
  Age: 61 Year
  Sex: Male
  Weight: 68 kg

DRUGS (6)
  1. VIOXX [Suspect]
     Indication: OSTEOARTHRITIS
     Route: 048
     Dates: start: 20020901, end: 20021201
  2. ASPIRIN [Concomitant]
     Route: 065
     Dates: start: 19750101
  3. ZOCOR [Concomitant]
     Route: 048
  4. THIAMINE HYDROCHLORIDE [Concomitant]
     Route: 065
  5. FERROUS SULFATE [Concomitant]
     Route: 065
  6. SODIUM FOLATE [Concomitant]
     Route: 065

REACTIONS (6)
  - CARDIAC FAILURE [None]
  - CARDIAC FAILURE CONGESTIVE [None]
  - CARDIOVASCULAR DISORDER [None]
  - CEREBROVASCULAR ACCIDENT [None]
  - HYPERTENSION [None]
  - MYOCARDIAL INFARCTION [None]
